FAERS Safety Report 8570479-2 (Version None)
Quarter: 2012Q3

REPORT INFORMATION
  Report Type: 
  Country: None (occurrence: None)
  Receive Date: 20120803
  Receipt Date: 20120724
  Transmission Date: 20120928
  Serious: No
  Sender: FDA-Public Use
  Company Number: US-ASTRAZENECA-2012SE52764

PATIENT
  Age: 52 Year
  Sex: Female

DRUGS (4)
  1. SEROQUEL [Suspect]
     Indication: BIPOLAR DISORDER
     Dosage: 300 MG TABLETS CUTTING THEM INTO FOUR
     Route: 048
  2. SEROQUEL [Suspect]
     Indication: OBSESSIVE-COMPULSIVE DISORDER
     Dosage: 300 MG TABLETS CUTTING THEM INTO FOUR
     Route: 048
  3. SEROQUEL [Suspect]
     Indication: MAJOR DEPRESSION
     Dosage: 300 MG TABLETS CUTTING THEM INTO FOUR
     Route: 048
  4. SEROQUEL [Suspect]
     Indication: PANIC DISORDER
     Dosage: 300 MG TABLETS CUTTING THEM INTO FOUR
     Route: 048

REACTIONS (6)
  - DRUG DOSE OMISSION [None]
  - PANIC DISORDER [None]
  - THINKING ABNORMAL [None]
  - FEELING ABNORMAL [None]
  - OFF LABEL USE [None]
  - PSYCHOTIC DISORDER [None]
